FAERS Safety Report 7059771-0 (Version None)
Quarter: 2010Q4

REPORT INFORMATION
  Report Type: 
  Country: None (occurrence: None)
  Receive Date: 20101025
  Receipt Date: 20101019
  Transmission Date: 20110411
  Serious: Yes (Other)
  Sender: FDA-Public Use
  Company Number: DE-PFIZER INC-2010132471

PATIENT
  Sex: Male

DRUGS (2)
  1. XALATAN [Suspect]
     Dosage: UNK
     Route: 047
  2. BRINZOLAMIDE/TIMOLOL [Concomitant]
     Dosage: UNK

REACTIONS (1)
  - INTRAOCULAR PRESSURE INCREASED [None]
